FAERS Safety Report 8968636 (Version 2)
Quarter: 2012Q4

REPORT INFORMATION
  Report Type: 
  Country: US (occurrence: US)
  Receive Date: 20121218
  Receipt Date: 20121220
  Transmission Date: 20130627
  Serious: No
  Sender: FDA-Public Use
  Company Number: US-ASTRAZENECA-2012SE92519

PATIENT
  Age: 72 Year
  Sex: Female
  Weight: 51.3 kg

DRUGS (11)
  1. ENTOCORT EC [Suspect]
     Indication: COLITIS
     Route: 048
  2. ENTOCORT EC [Suspect]
     Indication: COLITIS
     Route: 048
  3. LISINOPRIL [Suspect]
     Route: 048
  4. PAXIL [Concomitant]
  5. ZOLOFT [Concomitant]
  6. METOPROLOL TARTRATE [Concomitant]
     Route: 048
  7. AMLODIPINE [Concomitant]
  8. DIGOXIN [Concomitant]
  9. ASA [Concomitant]
  10. ADVAIR [Concomitant]
  11. XANAX [Concomitant]
     Dosage: AS NEEDED 3-1 MG PER DAY AS NEEDED

REACTIONS (6)
  - Colitis microscopic [Unknown]
  - Weight decreased [Unknown]
  - Nightmare [Unknown]
  - Headache [Unknown]
  - Memory impairment [Unknown]
  - Off label use [Unknown]
